FAERS Safety Report 24705778 (Version 1)
Quarter: 2024Q4

REPORT INFORMATION
  Report Type: Report from Study
  Country: FR (occurrence: FR)
  Receive Date: 20241206
  Receipt Date: 20241206
  Transmission Date: 20250115
  Serious: Yes (Other)
  Sender: PFIZER
  Company Number: FR-PFIZER INC-202400315524

PATIENT
  Age: 17 Year
  Sex: Male

DRUGS (2)
  1. SIROLIMUS [Suspect]
     Active Substance: SIROLIMUS
     Indication: Vascular malformation
     Dosage: 1.5 PLUS MINUS 0.7 MG/DAY FOR ADULTS AKEN ONCE DAILY FOR 30 PATIENTS OR TWICE DAILY FOR 27
     Route: 048
  2. SIROLIMUS [Suspect]
     Active Substance: SIROLIMUS
     Indication: Neoplasm
     Dosage: UNK (DECREASED DOSAGE)
     Route: 048

REACTIONS (1)
  - Angioedema [Recovered/Resolved]
